FAERS Safety Report 8854427 (Version 1)
Quarter: 2012Q4

REPORT INFORMATION
  Report Type: 
  Country: US (occurrence: US)
  Receive Date: 20121023
  Receipt Date: 20121023
  Transmission Date: 20130627
  Serious: No
  Sender: FDA-Public Use
  Company Number: US-ASTRAZENECA-2012SE77489

PATIENT
  Age: 72 Year
  Sex: Male
  Weight: 93 kg

DRUGS (4)
  1. TOPROL XL [Suspect]
     Indication: HYPERTENSION
     Route: 048
  2. TOPROL XL [Suspect]
     Indication: HYPERTENSION
     Dosage: DOUBLE UP ON HIS MEDICATION FOR 1 WEEK
     Route: 048
  3. ASA [Concomitant]
  4. FISH OIL [Concomitant]

REACTIONS (7)
  - Angina pectoris [Not Recovered/Not Resolved]
  - Blood pressure inadequately controlled [Unknown]
  - Bradycardia [Unknown]
  - Dry mouth [Unknown]
  - Tinnitus [Unknown]
  - Intentional drug misuse [Unknown]
  - Drug ineffective [Unknown]
